FAERS Safety Report 25162558 (Version 1)
Quarter: 2025Q2

REPORT INFORMATION
  Report Type: Spontaneous
  Country: AT (occurrence: None)
  Receive Date: 20250404
  Receipt Date: 20250404
  Transmission Date: 20250716
  Serious: Yes (Hospitalization, Other)
  Sender: INCYTE
  Company Number: AT-002147023-NVSC2025AT052791

PATIENT
  Age: 69 Year

DRUGS (2)
  1. RUXOLITINIB [Suspect]
     Active Substance: RUXOLITINIB
     Indication: Product used for unknown indication
     Route: 065
  2. RIVAROXABAN [Concomitant]
     Active Substance: RIVAROXABAN
     Indication: Anticoagulant therapy
     Route: 065

REACTIONS (9)
  - Acute kidney injury [Unknown]
  - Atrial fibrillation [Unknown]
  - Superinfection bacterial [Unknown]
  - COVID-19 pneumonia [Unknown]
  - Erysipelas [Unknown]
  - Influenza [Unknown]
  - Pyrexia [Unknown]
  - Cardiac failure [Unknown]
  - Pneumonia [Unknown]
